FAERS Safety Report 4602041-8 (Version None)
Quarter: 2005Q1

REPORT INFORMATION
  Report Type: 
  Country: None (occurrence: None)
  Receive Date: 20050308
  Receipt Date: 20050210
  Transmission Date: 20050727
  Serious: Yes (Other)
  Sender: FDA-Public Use
  Company Number: US-MERCK-0502USA01283

PATIENT
  Age: 25 Year
  Sex: Male

DRUGS (2)
  1. COZAAR [Suspect]
     Indication: RENAL DISORDER
     Route: 048
     Dates: start: 20040401, end: 20050101
  2. VASOTEC [Concomitant]
     Route: 048

REACTIONS (4)
  - ALANINE AMINOTRANSFERASE INCREASED [None]
  - ASPARTATE AMINOTRANSFERASE INCREASED [None]
  - HEPATITIS [None]
  - PROTEIN URINE PRESENT [None]
